FAERS Safety Report 8132400-0 (Version None)
Quarter: 2012Q1

REPORT INFORMATION
  Report Type: 
  Country: None (occurrence: None)
  Receive Date: 20120213
  Receipt Date: 20120201
  Transmission Date: 20120608
  Serious: Yes (Hospitalization)
  Sender: FDA-Public Use
  Company Number: US-ELI_LILLY_AND_COMPANY-US201202001140

PATIENT
  Sex: Female

DRUGS (4)
  1. THYROID [Concomitant]
     Dosage: UNK, QD
  2. FORTEO [Suspect]
     Dosage: 20 UG, QD
  3. ESTRACE [Concomitant]
     Dosage: UNK, QD
  4. FORTEO [Suspect]
     Indication: OSTEOPOROSIS
     Dosage: 20 UG, QD

REACTIONS (9)
  - BONE DISORDER [None]
  - NAUSEA [None]
  - PRURITUS [None]
  - DIARRHOEA [None]
  - ADVERSE DRUG REACTION [None]
  - KNEE ARTHROPLASTY [None]
  - CHILLS [None]
  - RASH [None]
  - FEAR [None]
